FAERS Safety Report 21331439 (Version 1)
Quarter: 2022Q3

REPORT INFORMATION
  Report Type: Spontaneous
  Country: US (occurrence: US)
  Receive Date: 20220914
  Receipt Date: 20220914
  Transmission Date: 20221027
  Serious: Yes (Other)
  Sender: FDA-Public Use
  Company Number: US-SA-SAC20220912001461

PATIENT

DRUGS (2)
  1. ZANTAC [Suspect]
     Active Substance: RANITIDINE HYDROCHLORIDE
     Dosage: UNK, PRESCRIPTION AND OVER THE COUNTER
     Route: 048
     Dates: start: 1995, end: 2019
  2. RANITIDINE HYDROCHLORIDE [Suspect]
     Active Substance: RANITIDINE HYDROCHLORIDE
     Dosage: UNK, PRESCRIPTION AND OVER THE COUNTER
     Route: 048
     Dates: start: 1997, end: 2019

REACTIONS (2)
  - Colorectal cancer [Unknown]
  - Thyroid cancer [Unknown]
